FAERS Safety Report 5454309-3 (Version None)
Quarter: 2007Q3

REPORT INFORMATION
  Report Type: 
  Country: None (occurrence: None)
  Receive Date: 20070917
  Receipt Date: 20060912
  Transmission Date: 20080115
  Serious: Yes (Other)
  Sender: FDA-Public Use
  Company Number: US-ASTRAZENECA-2006UW15902

PATIENT
  Age: 39 Year
  Sex: Female
  Weight: 85 kg

DRUGS (5)
  1. SEROQUEL [Suspect]
     Indication: DEPRESSION
     Route: 048
     Dates: start: 20060622, end: 20060629
  2. SEROQUEL [Suspect]
     Route: 048
     Dates: start: 20060629
  3. PHENOBARB [Concomitant]
     Indication: CONVULSION
     Route: 048
     Dates: start: 20060120
  4. DILANTIN [Concomitant]
     Indication: CONVULSION
     Route: 048
     Dates: start: 20060120
  5. DEPAKOTE [Concomitant]
     Indication: CONVULSION
     Dosage: 500 5QD
     Route: 048
     Dates: start: 20050112

REACTIONS (2)
  - GRAND MAL CONVULSION [None]
  - PETIT MAL EPILEPSY [None]
